FAERS Safety Report 25726260 (Version 1)
Quarter: 2025Q3

REPORT INFORMATION
  Report Type: Spontaneous
  Country: US (occurrence: US)
  Receive Date: 20250826
  Receipt Date: 20250826
  Transmission Date: 20251021
  Serious: No
  Sender: SANOFI AVENTIS
  Company Number: US-SA-2025SA251237

PATIENT
  Age: 2 Year
  Sex: Male

DRUGS (2)
  1. ALTUVIIIO [Suspect]
     Active Substance: EFANESOCTOCOG ALFA
     Indication: Factor VIII deficiency
     Route: 042
     Dates: start: 202412
  2. IRON [Concomitant]
     Active Substance: IRON

REACTIONS (2)
  - Mouth haemorrhage [Unknown]
  - Tongue biting [Unknown]

NARRATIVE: CASE EVENT DATE: 20250726
